FAERS Safety Report 6568375-5 (Version None)
Quarter: 2010Q1

REPORT INFORMATION
  Report Type: 
  Country: None (occurrence: None)
  Receive Date: 20100128
  Receipt Date: 20100118
  Transmission Date: 20100710
  Serious: Yes (Other)
  Sender: FDA-Public Use
  Company Number: 004973

PATIENT
  Sex: Female
  Weight: 70 kg

DRUGS (15)
  1. VIMPAT [Suspect]
     Indication: EPILEPSY
     Dosage: 25 MG QD, EVENING DOSE ORAL),(25 MG BID ORAL),(75 MG, 25 MG MORNING, 50 MG EVENING ORAL), (50 MG BID
     Route: 048
     Dates: start: 20091125, end: 20100117
  2. FRISIUM [Concomitant]
  3. NEURONTIN [Concomitant]
  4. TRILEPTAL [Concomitant]
  5. TEGRETOL [Concomitant]
  6. INSULIN MIXTARD [Concomitant]
  7. HUMAN INSULATARD [Concomitant]
  8. LOORTAN [Concomitant]
  9. CANRENOL [Concomitant]
  10. LODIXAL [Concomitant]
  11. PRAVASTATIN SODIUM [Concomitant]
  12. LASIX [Concomitant]
  13. LOCOIDOL [Concomitant]
  14. ADVANTAN [Concomitant]
  15. TRIAMCINOLONE [Concomitant]

REACTIONS (2)
  - PRURITUS [None]
  - RASH GENERALISED [None]
